FAERS Safety Report 4969664-8 (Version None)
Quarter: 2006Q2

REPORT INFORMATION
  Report Type: 
  Country: None (occurrence: None)
  Receive Date: 20060411
  Receipt Date: 20040219
  Transmission Date: 20061013
  Serious: Yes (Disabling)
  Sender: FDA-Public Use
  Company Number: US-2004-BP-01279PF

PATIENT
  Weight: 58 kg

DRUGS (8)
  1. SPIRIVA [Suspect]
     Indication: CHRONIC OBSTRUCTIVE PULMONARY DISEASE
     Route: 055
  2. VERAHEXAL [Concomitant]
     Route: 048
  3. BRONCHORETARD [Concomitant]
     Route: 048
  4. PREDNISOLONE [Concomitant]
     Route: 048
  5. DELIX [Concomitant]
     Route: 048
  6. SIMVAHEXAL [Concomitant]
     Route: 048
  7. NORVASC [Concomitant]
     Route: 048
  8. ADVAIR DISKUS 100/50 [Concomitant]
     Route: 048

REACTIONS (3)
  - BACK PAIN [None]
  - DRY MOUTH [None]
  - MUCOSAL DRYNESS [None]
